FAERS Safety Report 6382067-7 (Version None)
Quarter: 2009Q3

REPORT INFORMATION
  Report Type: 
  Country: None (occurrence: None)
  Receive Date: 20090930
  Receipt Date: 20090918
  Transmission Date: 20100115
  Serious: Yes (Other)
  Sender: FDA-Public Use
  Company Number: PHHY2009BR31354

PATIENT
  Age: 55 Year
  Sex: Male

DRUGS (3)
  1. CLOFAZIMINE [Suspect]
     Indication: LEPROSY
     Dosage: UNK
     Dates: start: 20090701
  2. RIFAMPICIN [Suspect]
     Indication: LEPROSY
     Dosage: UNK
     Dates: start: 20090701
  3. DAPSONE [Suspect]
     Indication: LEPROSY
     Dosage: UNK
     Dates: start: 20090701

REACTIONS (2)
  - HYPERSENSITIVITY [None]
  - RASH [None]
